FAERS Safety Report 4300060-2 (Version None)
Quarter: 2004Q1

REPORT INFORMATION
  Report Type: 
  Country: None (occurrence: None)
  Receive Date: 20040220
  Receipt Date: 20040105
  Transmission Date: 20041129
  Serious: Yes (Hospitalization)
  Sender: FDA-Public Use
  Company Number: 200410001FR

PATIENT
  Age: 68 Year
  Sex: Female

DRUGS (14)
  1. FEXOFENADINE HCL [Suspect]
     Route: 048
     Dates: start: 20030615, end: 20031202
  2. AMAREL [Suspect]
     Indication: DIABETES MELLITUS NON-INSULIN-DEPENDENT
     Route: 048
     Dates: start: 20030615, end: 20031202
  3. SERESTA [Suspect]
     Route: 048
     Dates: start: 20030615, end: 20031202
  4. NIDREL [Suspect]
     Route: 048
     Dates: start: 20030615, end: 20031202
  5. SEROPRAM [Suspect]
     Route: 048
     Dates: start: 20030615, end: 20031202
  6. TAHOR [Suspect]
     Route: 048
     Dates: start: 20030615, end: 20031202
  7. HYTACAND [Suspect]
     Route: 048
     Dates: start: 20030615, end: 20031202
  8. LAMALINE [Suspect]
     Route: 048
     Dates: start: 20030615, end: 20031202
  9. TILCOTIL [Suspect]
     Route: 048
     Dates: start: 20030615, end: 20031202
  10. MYORELAX [Suspect]
     Route: 048
     Dates: start: 20030615, end: 20031202
  11. RIVOTRIL [Suspect]
     Route: 048
     Dates: start: 20031114, end: 20031202
  12. NUREFLEX [Suspect]
     Route: 048
     Dates: start: 20031127, end: 20031202
  13. CIFLOX [Suspect]
     Route: 048
     Dates: start: 20031106, end: 20031106
  14. TROSPIUM CHLORIDE [Suspect]
     Route: 048
     Dates: start: 20031103, end: 20031202

REACTIONS (5)
  - ANURIA [None]
  - HAEMORRHAGE [None]
  - HYDRONEPHROSIS [None]
  - RENAL FAILURE ACUTE [None]
  - THROMBOCYTOPENIA [None]
